FAERS Safety Report 15597545 (Version 2)
Quarter: 2018Q4

REPORT INFORMATION
  Report Type: Spontaneous
  Country: PT (occurrence: PT)
  Receive Date: 20181108
  Receipt Date: 20181115
  Transmission Date: 20190205
  Serious: Yes (Hospitalization, Other)
  Sender: FDA-Public Use
  Company Number: PT-TEVA-2018-PT-971551

PATIENT
  Age: 40 Year
  Sex: Male

DRUGS (1)
  1. ARTESUNATE W/MEFLOQUINE [Suspect]
     Active Substance: ARTESUNATE\MEFLOQUINE
     Route: 065

REACTIONS (1)
  - Haemolytic anaemia [Recovered/Resolved]
